FAERS Safety Report 5298771-8 (Version None)
Quarter: 2007Q2

REPORT INFORMATION
  Report Type: 
  Country: None (occurrence: None)
  Receive Date: 20070417
  Receipt Date: 20070403
  Transmission Date: 20071010
  Serious: Yes (Death, Hospitalization)
  Sender: FDA-Public Use
  Company Number: DE-SANOFI-SYNTHELABO-A04200700451

PATIENT
  Sex: Male
  Weight: 77 kg

DRUGS (3)
  1. ELOXATIN [Suspect]
     Indication: COLON CANCER STAGE IV
     Route: 041
  2. MARCUMAR [Concomitant]
     Indication: AORTIC VALVE REPLACEMENT
     Dosage: UNK
     Route: 048
  3. IRINOTECAN HCL [Concomitant]
     Indication: COLON CANCER STAGE IV
     Route: 042
     Dates: start: 20060101, end: 20060101

REACTIONS (6)
  - DYSPNOEA EXERTIONAL [None]
  - HYPOXIA [None]
  - ORTHOPNOEA [None]
  - POLYNEUROPATHY TOXIC [None]
  - PULMONARY FIBROSIS [None]
  - THROMBOCYTOPENIA [None]
